FAERS Safety Report 25483677 (Version 1)
Quarter: 2025Q2

REPORT INFORMATION
  Report Type: Spontaneous
  Country: IT (occurrence: IT)
  Receive Date: 20250626
  Receipt Date: 20250626
  Transmission Date: 20250717
  Serious: Yes (Life-Threatening)
  Sender: EXELIXIS
  Company Number: IT-IPSEN Group, Research and Development-2025-14443

PATIENT
  Age: 60 Year
  Sex: Male
  Weight: 83 kg

DRUGS (1)
  1. CABOMETYX [Suspect]
     Active Substance: CABOZANTINIB S-MALATE
     Indication: Hepatocellular carcinoma
     Dosage: CABOMETYX 60 MG 1X1 FROM 07-MAY-2025
     Route: 065
     Dates: start: 20250507, end: 20250511

REACTIONS (2)
  - Oedema [Recovered/Resolved]
  - Swollen tongue [Recovered/Resolved]

NARRATIVE: CASE EVENT DATE: 20250511
